FAERS Safety Report 15547917 (Version 1)
Quarter: 2018Q4

REPORT INFORMATION
  Report Type: Spontaneous
  Country: US (occurrence: US)
  Receive Date: 20181024
  Receipt Date: 20181024
  Transmission Date: 20190205
  Serious: No
  Sender: FDA-Public Use
  Company Number: US-ARBOR PHARMACEUTICALS, LLC-US-2018ARB000956

PATIENT
  Age: 7 Year
  Sex: Female

DRUGS (2)
  1. TRIPTODUR [Suspect]
     Active Substance: TRIPTORELIN
     Indication: PRODUCT USED FOR UNKNOWN INDICATION
     Dosage: UNK
  2. TRIPTODUR [Suspect]
     Active Substance: TRIPTORELIN
     Dosage: UNK
     Dates: start: 20180809, end: 20180809

REACTIONS (4)
  - Poor quality product administered [Unknown]
  - Product physical consistency issue [Unknown]
  - Product use complaint [Unknown]
  - Underdose [Unknown]

NARRATIVE: CASE EVENT DATE: 20180809
